FAERS Safety Report 7918520-1 (Version None)
Quarter: 2011Q4

REPORT INFORMATION
  Report Type: 
  Country: None (occurrence: None)
  Receive Date: 20111116
  Receipt Date: 20111104
  Transmission Date: 20120403
  Serious: Yes (Hospitalization)
  Sender: FDA-Public Use
  Company Number: US-PFIZER INC-2011245030

PATIENT
  Sex: Female

DRUGS (25)
  1. B-VOLTAREN [Concomitant]
     Dosage: UNK
  2. CALCITONIN [Concomitant]
     Dosage: UNK
  3. PLAVIX [Concomitant]
     Dosage: UNK
  4. LASIX [Concomitant]
     Dosage: UNK
  5. LYRICA [Concomitant]
     Dosage: UNK
  6. RANEXA [Concomitant]
     Dosage: UNK
  7. FERROUS SULFATE [Concomitant]
     Dosage: UNK
  8. ZETIA [Concomitant]
     Dosage: UNK
  9. PREDNISONE [Concomitant]
     Dosage: UNK
     Dates: start: 20110929
  10. PROTONIX [Concomitant]
     Dosage: UNK
  11. AMLODIPINE AND ATORVASTATIN [Suspect]
     Indication: HYPERLIPIDAEMIA
  12. HUMULIN R [Concomitant]
     Dosage: UNK
  13. BACLOFEN [Concomitant]
     Dosage: UNK
  14. POTASSIUM CHLORIDE [Concomitant]
     Dosage: UNK
  15. ACETYLSALICYLIC ACID [Concomitant]
     Dosage: UNK
  16. ATACAND [Suspect]
     Indication: HYPERTENSION
     Dosage: 32 MG, 1X/DAY
     Route: 048
     Dates: start: 20070216
  17. AMITRIPTYLINE [Concomitant]
     Dosage: UNK
  18. CARVEDILOL [Concomitant]
     Dosage: UNK
  19. VITAMIN D [Concomitant]
     Dosage: UNK
  20. ATORVASTATIN AND AMLODIPINE [Suspect]
     Indication: HYPERTENSION
     Dosage: 10 MG/80 MG, 1X/DAY
     Route: 048
     Dates: start: 20070321
  21. NIACIN [Concomitant]
     Dosage: UNK
  22. BETAMETHASONE DIPROPIONATE/CLOTRIMAZOLE [Concomitant]
     Dosage: UNK
  23. NITROGLYCERIN [Concomitant]
     Dosage: UNK
  24. IMDUR [Concomitant]
     Dosage: UNK
  25. PREDNISONE ACETATE [Concomitant]
     Dosage: UNK

REACTIONS (2)
  - CARDIAC FAILURE CONGESTIVE [None]
  - MYOCARDIAL INFARCTION [None]
